FAERS Safety Report 8932827 (Version 2)
Quarter: 2014Q1

REPORT INFORMATION
  Report Type: Spontaneous
  Country: US (occurrence: US)
  Receive Date: 20121129
  Receipt Date: 20140116
  Transmission Date: 20141002
  Serious: Yes (Other)
  Sender: FDA-Public Use
  Company Number: US-BAYER-2012-124755

PATIENT
  Age: 21 Year
  Sex: Female

DRUGS (5)
  1. YAZ [Suspect]
     Indication: CONTRACEPTION
  2. YASMIN [Suspect]
     Indication: CONTRACEPTION
  3. OCELLA [Suspect]
     Indication: CONTRACEPTION
  4. HYDROCODONE W/ACETAMINOPHEN [Concomitant]
     Indication: PAIN
     Dosage: 5-500 MG, 1 TABLET EVERY 6 HOURS AS NEEDED
     Route: 048
  5. PRILOSEC [Concomitant]
     Dosage: 20 MG ONE TIME DAILY
     Route: 048

REACTIONS (8)
  - Cholelithiasis [None]
  - Gallbladder disorder [None]
  - Pain [None]
  - Fear of disease [None]
  - Injury [None]
  - Emotional distress [None]
  - Pain [None]
  - Cholecystitis chronic [None]
